FAERS Safety Report 9742172 (Version 2)
Quarter: 2013Q4

REPORT INFORMATION
  Report Type: Report from Study
  Country: IN (occurrence: IN)
  Receive Date: 20131210
  Receipt Date: 20131210
  Transmission Date: 20140711
  Serious: Yes (Death, Hospitalization)
  Sender: FDA-Public Use
  Company Number: IN-SA-2013SA107567

PATIENT
  Age: 58 Year
  Sex: Female

DRUGS (4)
  1. TAXOTERE [Suspect]
     Indication: BREAST CANCER
     Route: 042
     Dates: start: 20130814, end: 20130814
  2. TAXOTERE [Suspect]
     Indication: BREAST CANCER
     Route: 042
     Dates: start: 20130905, end: 20130905
  3. TAXOTERE [Suspect]
     Indication: BREAST CANCER
     Route: 042
     Dates: end: 20131017
  4. TAXOTERE [Suspect]
     Indication: BREAST CANCER
     Route: 042
     Dates: start: 20130926, end: 20130926

REACTIONS (5)
  - Cardiac arrest [Fatal]
  - Pyrexia [Recovering/Resolving]
  - Pulmonary oedema [Recovering/Resolving]
  - Haemoglobin decreased [Not Recovered/Not Resolved]
  - Lung disorder [Not Recovered/Not Resolved]
